FAERS Safety Report 6937466-9 (Version None)
Quarter: 2010Q3

REPORT INFORMATION
  Report Type: 
  Country: None (occurrence: None)
  Receive Date: 20100823
  Receipt Date: 20100823
  Transmission Date: 20110219
  Serious: No
  Sender: FDA-Public Use
  Company Number: None

PATIENT
  Age: 7 Year
  Sex: Male
  Weight: 19.5047 kg

DRUGS (1)
  1. VYVANSE [Suspect]
     Indication: ATTENTION DEFICIT/HYPERACTIVITY DISORDER
     Dosage: 1 CAPSULE ONCE DAILY IN AM PO JUST TODAY
     Route: 048
     Dates: start: 20100820, end: 20100820

REACTIONS (2)
  - ABDOMINAL PAIN UPPER [None]
  - VOMITING [None]
